FAERS Safety Report 17794499 (Version 3)
Quarter: 2021Q4

REPORT INFORMATION
  Report Type: Spontaneous
  Country: US (occurrence: US)
  Receive Date: 20200515
  Receipt Date: 20211201
  Transmission Date: 20220303
  Serious: Yes (Death, Other)
  Sender: FDA-Public Use
  Company Number: US-PERRIGO-20US006858

PATIENT
  Sex: Male

DRUGS (12)
  1. PREVACID 24 HR [Suspect]
     Active Substance: LANSOPRAZOLE
     Indication: Gastrooesophageal reflux disease
     Dosage: UNK
     Route: 065
     Dates: start: 2009, end: 2017
  2. PREVACID 24 HR [Suspect]
     Active Substance: LANSOPRAZOLE
     Indication: Gastric disorder
  3. PREVACID 24 HR [Suspect]
     Active Substance: LANSOPRAZOLE
     Indication: Dyspepsia
  4. PREVACID [Suspect]
     Active Substance: LANSOPRAZOLE
     Indication: Gastrooesophageal reflux disease
     Dosage: 30 MG, QD
     Route: 065
     Dates: start: 1995, end: 2017
  5. PREVACID [Suspect]
     Active Substance: LANSOPRAZOLE
     Indication: Gastric disorder
     Dosage: 30 MG, QD
     Route: 048
     Dates: start: 19991126, end: 20030730
  6. OMEPRAZOLE [Suspect]
     Active Substance: OMEPRAZOLE
     Indication: Gastrooesophageal reflux disease
     Dosage: 20 MG, QD
     Route: 048
     Dates: start: 2000, end: 201704
  7. PRILOSEC [Suspect]
     Active Substance: OMEPRAZOLE MAGNESIUM
     Indication: Gastrooesophageal reflux disease
     Dosage: 20 MG, QD
     Route: 065
     Dates: start: 1991, end: 2017
  8. PRILOSEC [Suspect]
     Active Substance: OMEPRAZOLE MAGNESIUM
     Dosage: 20 MG, QD
     Route: 048
     Dates: start: 19990225, end: 20000225
  9. OMEPRAZOLE SODIUM [Suspect]
     Active Substance: OMEPRAZOLE SODIUM
     Indication: Gastrooesophageal reflux disease
     Dosage: 20 MG, QD
     Route: 065
     Dates: start: 2011
  10. OMEPRAZOLE SODIUM [Suspect]
     Active Substance: OMEPRAZOLE SODIUM
     Indication: Dyspepsia
     Dosage: 20 MG, QD
     Route: 048
     Dates: start: 20031212, end: 20101018
  11. OMEPRAZOLE SODIUM [Suspect]
     Active Substance: OMEPRAZOLE SODIUM
     Dosage: 20 MG, BID
     Route: 048
     Dates: start: 20101003
  12. PANTOPRAZOLE [Suspect]
     Active Substance: PANTOPRAZOLE
     Indication: Gastrooesophageal reflux disease
     Dosage: 40 MG, QD
     Route: 048

REACTIONS (20)
  - Death [Fatal]
  - Acute kidney injury [Unknown]
  - Chronic kidney disease [Unknown]
  - Renal impairment [Unknown]
  - Nephrotic syndrome [Unknown]
  - End stage renal disease [Unknown]
  - Renal failure [Unknown]
  - Azotaemia [Unknown]
  - Nephropathy [Unknown]
  - Renal transplant [Unknown]
  - Pollakiuria [Unknown]
  - Haematuria [Unknown]
  - Micturition urgency [Unknown]
  - Diabetic nephropathy [Unknown]
  - Dysuria [Recovering/Resolving]
  - Renal disorder [Unknown]
  - Proteinuria [Unknown]
  - Dialysis [Not Recovered/Not Resolved]
  - Chromaturia [Unknown]
  - Urine odour abnormal [Unknown]
